FAERS Safety Report 6601560-2 (Version None)
Quarter: 2010Q1

REPORT INFORMATION
  Report Type: 
  Country: None (occurrence: None)
  Receive Date: 20100225
  Receipt Date: 20091202
  Transmission Date: 20100710
  Serious: No
  Sender: FDA-Public Use
  Company Number: US-KINGPHARMUSA00001-K200901517

PATIENT
  Age: 54 Year
  Sex: Female
  Weight: 68.027 kg

DRUGS (1)
  1. FLECTOR [Suspect]
     Indication: FIBROMYALGIA
     Dosage: 1 PATCH, BID
     Route: 061
     Dates: start: 20091123

REACTIONS (5)
  - ABDOMINAL PAIN [None]
  - ARTHRALGIA [None]
  - DYSURIA [None]
  - JOINT SWELLING [None]
  - URINE ODOUR ABNORMAL [None]
